FAERS Safety Report 20519681 (Version 3)
Quarter: 2022Q1

REPORT INFORMATION
  Report Type: Report from Study
  Country: US (occurrence: US)
  Receive Date: 20220225
  Receipt Date: 20220315
  Transmission Date: 20220423
  Serious: Yes (Other)
  Sender: FDA-Public Use
  Company Number: US-GLAXOSMITHKLINE-US2022GSK029337

PATIENT
  Age: 70 Year
  Sex: Female

DRUGS (4)
  1. BELIMUMAB [Suspect]
     Active Substance: BELIMUMAB
     Indication: Systemic scleroderma
     Dosage: 200 MG, CYC
     Route: 058
     Dates: start: 20211108
  2. RITUXIMAB [Suspect]
     Active Substance: RITUXIMAB
     Indication: Systemic scleroderma
     Dosage: 1000 MG, CYC
     Route: 042
     Dates: start: 20211008
  3. RITUXIMAB [Suspect]
     Active Substance: RITUXIMAB
     Dosage: 1000 MG, CYC
     Route: 042
     Dates: start: 20211022
  4. MYCOPHENOLATE MOFETIL [Suspect]
     Active Substance: MYCOPHENOLATE MOFETIL
     Indication: Systemic scleroderma
     Dosage: 1500 MG, BID
     Dates: start: 20210525

REACTIONS (5)
  - Gastrooesophageal reflux disease [Recovered/Resolved]
  - Condition aggravated [Recovered/Resolved]
  - Anal squamous cell carcinoma [Unknown]
  - Bacterial colitis [Recovered/Resolved]
  - Yersinia infection [Recovered/Resolved]

NARRATIVE: CASE EVENT DATE: 20220128
